FAERS Safety Report 14253685 (Version 1)
Quarter: 2017Q4

REPORT INFORMATION
  Report Type: Spontaneous
  Country: SI (occurrence: SI)
  Receive Date: 20171205
  Receipt Date: 20171205
  Transmission Date: 20180321
  Serious: Yes (Other)
  Sender: FDA-Public Use
  Company Number: SI-AMGEN-SVNSP2017178565

PATIENT
  Age: 56 Year
  Sex: Female
  Weight: 68 kg

DRUGS (4)
  1. PROLIA [Suspect]
     Active Substance: DENOSUMAB
     Indication: OSTEOPOROSIS
     Dosage: 60 MG, UNK
     Route: 065
     Dates: end: 201606
  2. CALCIUM CARBONATE. [Concomitant]
     Active Substance: CALCIUM CARBONATE
     Dosage: 1000 MG, QD
  3. RALOXIFENE. [Concomitant]
     Active Substance: RALOXIFENE
  4. VITAMIN D3 [Concomitant]
     Active Substance: CHOLECALCIFEROL
     Dosage: 1000 IU, UNK

REACTIONS (10)
  - Muscle spasms [Unknown]
  - Spinal compression fracture [Unknown]
  - Vertigo [Unknown]
  - Hypersensitivity [Unknown]
  - Headache [Unknown]
  - Urinary tract infection [Unknown]
  - Nausea [Unknown]
  - Back pain [Unknown]
  - Hot flush [Unknown]
  - Influenza like illness [Unknown]

NARRATIVE: CASE EVENT DATE: 201606
